FAERS Safety Report 5375937-X (Version None)
Quarter: 2007Q2

REPORT INFORMATION
  Report Type: 
  Country: None (occurrence: None)
  Receive Date: 20070627
  Receipt Date: 20070627
  Transmission Date: 20071010
  Serious: Yes (Other)
  Sender: FDA-Public Use
  Company Number: None

PATIENT
  Sex: Male
  Weight: 98.5 kg

DRUGS (2)
  1. RAPAMUNE [Suspect]
     Indication: IMMUNOSUPPRESSANT DRUG THERAPY
     Dosage: 8 MG DAILY PO
     Route: 048
     Dates: start: 20070427, end: 20070618
  2. RAPAMUNE [Suspect]
     Indication: RENAL TRANSPLANT
     Dosage: 8 MG DAILY PO
     Route: 048
     Dates: start: 20070427, end: 20070618

REACTIONS (1)
  - STOMATITIS [None]
